FAERS Safety Report 4868770-6 (Version None)
Quarter: 2005Q4

REPORT INFORMATION
  Report Type: 
  Country: None (occurrence: None)
  Receive Date: 20051223
  Receipt Date: 20051213
  Transmission Date: 20060501
  Serious: Yes (Death)
  Sender: FDA-Public Use
  Company Number: 2005RR-01360

PATIENT
  Age: 43 Year
  Sex: Female

DRUGS (1)
  1. LORATADINE(LORATADINE) TABLET, 10MG [Suspect]
     Indication: NASAL CONGESTION
     Dosage: 10 MG SINGLE ORAL
     Route: 048

REACTIONS (2)
  - DIZZINESS [None]
  - TACHYCARDIA [None]
